FAERS Safety Report 14506733 (Version 1)
Quarter: 2018Q1

REPORT INFORMATION
  Report Type: Spontaneous
  Country: FR (occurrence: FR)
  Receive Date: 20180208
  Receipt Date: 20180208
  Transmission Date: 20180509
  Serious: Yes (Hospitalization)
  Sender: FDA-Public Use
  Company Number: PHHY2018FR017302

PATIENT
  Sex: Female

DRUGS (1)
  1. AMOXICILLIN CLAVULANIC ACID SANDOZ [Suspect]
     Active Substance: AMOXICILLIN\CLAVULANIC ACID
     Indication: BRONCHITIS
     Route: 065

REACTIONS (5)
  - Anal fissure [Unknown]
  - Functional gastrointestinal disorder [Unknown]
  - General physical health deterioration [Unknown]
  - Diarrhoea [Unknown]
  - Infection [Unknown]
